FAERS Safety Report 15245616 (Version 2)
Quarter: 2018Q3

REPORT INFORMATION
  Report Type: Spontaneous
  Country: FR (occurrence: FR)
  Receive Date: 20180806
  Receipt Date: 20180924
  Transmission Date: 20181010
  Serious: Yes (Hospitalization)
  Sender: FDA-Public Use
  Company Number: PHHY2018FR062962

PATIENT
  Age: 54 Year
  Sex: Female

DRUGS (22)
  1. SOTAGLIFLOZIN [Suspect]
     Active Substance: SOTAGLIFLOZIN
     Indication: TYPE 2 DIABETES MELLITUS
     Dosage: 2 DF, QD
     Route: 048
     Dates: start: 20180323, end: 20180419
  2. SOTAGLIFLOZIN [Suspect]
     Active Substance: SOTAGLIFLOZIN
     Dosage: 2 DF, QD
     Route: 048
     Dates: start: 20180525
  3. LEVOTHYROX [Concomitant]
     Active Substance: LEVOTHYROXINE
     Indication: HYPERTHYROIDISM
     Dosage: 75 MG, UNK
     Route: 048
  4. LANTUS [Suspect]
     Active Substance: INSULIN GLARGINE
     Indication: TYPE 2 DIABETES MELLITUS
     Dosage: 72 U, QD
     Route: 058
     Dates: start: 20180226, end: 20180228
  5. LANTUS [Suspect]
     Active Substance: INSULIN GLARGINE
     Dosage: 84 U, QD
     Route: 058
     Dates: start: 20180322
  6. SOTAGLIFLOZIN [Suspect]
     Active Substance: SOTAGLIFLOZIN
     Dosage: 2 DF, QD
     Route: 048
     Dates: start: 20180420, end: 20180524
  7. TRINITRIN [Concomitant]
     Active Substance: NITROGLYCERIN
     Indication: MYOCARDIAL INFARCTION
     Dosage: 1 DF, PRN
     Route: 050
     Dates: start: 20150523
  8. PARACETAMOL [Concomitant]
     Active Substance: ACETAMINOPHEN
     Indication: GASTROENTERITIS
     Dosage: UNK
     Route: 048
     Dates: start: 20180319, end: 20180321
  9. PARACETAMOL [Concomitant]
     Active Substance: ACETAMINOPHEN
     Indication: NASOPHARYNGITIS
     Dosage: 1 G, UNK
     Route: 048
     Dates: start: 20180522
  10. LANTUS [Suspect]
     Active Substance: INSULIN GLARGINE
     Dosage: 84 U, QD
     Route: 058
     Dates: start: 20180309
  11. AMAREL [Suspect]
     Active Substance: GLIMEPIRIDE
     Dosage: 1.5 MG, UNK
     Route: 048
  12. PARACETAMOL [Concomitant]
     Active Substance: ACETAMINOPHEN
     Dosage: 1 G, UNK
     Route: 048
     Dates: start: 20180529
  13. METFORMIN [Suspect]
     Active Substance: METFORMIN HYDROCHLORIDE
     Indication: TYPE 2 DIABETES MELLITUS
     Dosage: 2000 MG, UNK
     Route: 048
  14. LANTUS [Suspect]
     Active Substance: INSULIN GLARGINE
     Dosage: 76 U, QD
     Route: 058
     Dates: start: 20180301, end: 20180301
  15. SOTAGLIFLOZIN [Suspect]
     Active Substance: SOTAGLIFLOZIN
     Dosage: 2 DF, QD
     Route: 048
     Dates: start: 20180614
  16. AMOXICILLIN. [Concomitant]
     Active Substance: AMOXICILLIN
     Indication: NASOPHARYNGITIS
     Dosage: 3 G, UNK
     Route: 048
     Dates: start: 20180522
  17. AMAREL [Suspect]
     Active Substance: GLIMEPIRIDE
     Indication: PRODUCT USED FOR UNKNOWN INDICATION
     Dosage: 3 MG, UNK
     Route: 048
  18. LANTUS [Suspect]
     Active Substance: INSULIN GLARGINE
     Dosage: 80 U, QD
     Route: 058
     Dates: start: 20180302, end: 20180308
  19. RAMIPRIL. [Concomitant]
     Active Substance: RAMIPRIL
     Indication: HYPERTENSION
     Dosage: 20 MG, UNK
     Route: 048
  20. AMOXICILLIN. [Concomitant]
     Active Substance: AMOXICILLIN
     Dosage: 3 G, UNK
     Route: 048
     Dates: start: 20180529
  21. BISOPROLOL [Concomitant]
     Active Substance: BISOPROLOL
     Indication: HYPERTENSION
     Dosage: 7.5 MG, UNK
     Route: 048
  22. ASPIRINE [Concomitant]
     Active Substance: ASPIRIN
     Indication: MYOCARDIAL INFARCTION
     Dosage: 100 MG, UNK
     Route: 048

REACTIONS (1)
  - Palpitations [Recovered/Resolved]

NARRATIVE: CASE EVENT DATE: 20180606
